FAERS Safety Report 24445166 (Version 1)
Quarter: 2024Q4

REPORT INFORMATION
  Report Type: Spontaneous
  Country: US (occurrence: None)
  Receive Date: 20241016
  Receipt Date: 20241016
  Transmission Date: 20250115
  Serious: Yes (Hospitalization)
  Sender: Public
  Company Number: None

PATIENT
  Sex: Male

DRUGS (11)
  1. PULMOZYME [Suspect]
     Active Substance: DORNASE ALFA
     Indication: Bronchiectasis
     Route: 055
     Dates: start: 20190119
  2. ALBUTEROL SULFATE [Concomitant]
     Active Substance: ALBUTEROL SULFATE
  3. BOOSTRIX INJ [Concomitant]
  4. FAMOTIDINE SUS 40MG/5ML [Concomitant]
  5. FLUOCINONIDE CRE 0.05% [Concomitant]
  6. PEPCID TAB 20MG [Concomitant]
  7. PULMOZYME SOL 1 MG/ML [Concomitant]
  8. SYMBICORT AER 160-4.5 [Concomitant]
  9. SYMBICORT AER 80-4.5 [Concomitant]
  10. ITAMSULOSIN CAP 0.4MG [Concomitant]
  11. TRIAMCINOLON CRE 0.025% [Concomitant]

REACTIONS (2)
  - Adverse event [None]
  - Sleep disorder [None]
